FAERS Safety Report 18573674 (Version 2)
Quarter: 2021Q2

REPORT INFORMATION
  Report Type: Spontaneous
  Country: DK (occurrence: DK)
  Receive Date: 20201203
  Receipt Date: 20210521
  Transmission Date: 20210717
  Serious: No
  Sender: FDA-Public Use
  Company Number: DK-GLAXOSMITHKLINE-DK2020235291

PATIENT
  Sex: Female

DRUGS (1)
  1. NICORETTE [Suspect]
     Active Substance: NICOTINE
     Indication: SMOKING CESSATION THERAPY
     Dosage: STARTED 7 YEARS AGO, SEVERAL TIMES A DAY.
     Route: 048

REACTIONS (2)
  - Nicotine dependence [Unknown]
  - Intentional product use issue [Unknown]
